FAERS Safety Report 4283428-2 (Version None)
Quarter: 2004Q1

REPORT INFORMATION
  Report Type: 
  Country: None (occurrence: None)
  Receive Date: 20040129
  Receipt Date: 20040122
  Transmission Date: 20041129
  Serious: Yes (Hospitalization)
  Sender: FDA-Public Use
  Company Number: 2004CG00064

PATIENT
  Age: 54 Year
  Sex: Male

DRUGS (4)
  1. MOPRAL [Suspect]
     Dosage: 20 MG QD PO
     Dates: start: 20031103
  2. TEMODAL [Suspect]
     Indication: GLIOBLASTOMA
     Dosage: 350 MG DAILY PO
     Dates: start: 20031103, end: 20031108
  3. DAONIL [Suspect]
     Dosage: 15 MG QD
  4. SOLU-MEDROL [Suspect]
     Dosage: 40 MG QD PO

REACTIONS (5)
  - ELECTROENCEPHALOGRAM ABNORMAL [None]
  - HYPERGLYCAEMIA [None]
  - HYPONATRAEMIA [None]
  - LOSS OF CONSCIOUSNESS [None]
  - MYOCLONIC EPILEPSY [None]
